FAERS Safety Report 6739057-1 (Version None)
Quarter: 2010Q2

REPORT INFORMATION
  Report Type: 
  Country: None (occurrence: None)
  Receive Date: 20100524
  Receipt Date: 20100524
  Transmission Date: 20101027
  Serious: No
  Sender: FDA-Public Use
  Company Number: None

PATIENT
  Age: 55 Year
  Sex: Male
  Weight: 101.1521 kg

DRUGS (2)
  1. ZETIA [Suspect]
     Indication: BLOOD CHOLESTEROL INCREASED
     Dosage: 10 MG ONCE NIGHTLY PO
     Route: 048
     Dates: start: 20100513, end: 20100521
  2. ZETIA [Suspect]
     Indication: LOW DENSITY LIPOPROTEIN
     Dosage: 10 MG ONCE NIGHTLY PO
     Route: 048
     Dates: start: 20100513, end: 20100521

REACTIONS (3)
  - FATIGUE [None]
  - RASH PRURITIC [None]
  - SKIN BURNING SENSATION [None]
